FAERS Safety Report 12301213 (Version 1)
Quarter: 2016Q2

REPORT INFORMATION
  Report Type: Spontaneous
  Country: JP (occurrence: JP)
  Receive Date: 20160425
  Receipt Date: 20160425
  Transmission Date: 20160815
  Serious: Yes (Other)
  Sender: FDA-Public Use
  Company Number: JP-GILEAD-2016-0192234AA

PATIENT
  Age: 67 Year
  Sex: Male

DRUGS (4)
  1. CERCINE [Concomitant]
     Active Substance: DIAZEPAM
     Dosage: UNK
     Route: 065
  2. LIXIANA [Suspect]
     Active Substance: EDOXABAN TOSILATE MONOHYDRATE
     Indication: PRODUCT USED FOR UNKNOWN INDICATION
     Dosage: 30 MG, UNK
     Route: 065
     Dates: end: 20160106
  3. URSODEOXYCHOLIC AC [Concomitant]
     Dosage: UNK
     Route: 065
  4. HARVONI [Suspect]
     Active Substance: LEDIPASVIR\SOFOSBUVIR
     Indication: PRODUCT USED FOR UNKNOWN INDICATION
     Dosage: UNK
     Route: 048
     Dates: start: 20160107

REACTIONS (2)
  - Tooth extraction [Recovered/Resolved]
  - Haemorrhage [Recovered/Resolved]

NARRATIVE: CASE EVENT DATE: 20160108
